FAERS Safety Report 5939247-1 (Version None)
Quarter: 2008Q4

REPORT INFORMATION
  Report Type: 
  Country: None (occurrence: None)
  Receive Date: 20081103
  Receipt Date: 20081022
  Transmission Date: 20090506
  Serious: Yes (Other)
  Sender: FDA-Public Use
  Company Number: AR-PFIZER INC-2008074684

PATIENT
  Sex: Female
  Weight: 57 kg

DRUGS (2)
  1. CHAMPIX [Suspect]
     Indication: SMOKING CESSATION THERAPY
     Route: 048
     Dates: start: 20080821, end: 20080916
  2. HYDROXYCHLOROQUINE [Concomitant]
     Route: 048
     Dates: start: 19930101

REACTIONS (4)
  - GINGIVAL INFECTION [None]
  - NAUSEA [None]
  - PRURITUS [None]
  - URTICARIA [None]
